FAERS Safety Report 15127547 (Version 1)
Quarter: 2018Q3

REPORT INFORMATION
  Report Type: Spontaneous
  Country: US (occurrence: US)
  Receive Date: 20180710
  Receipt Date: 20180710
  Transmission Date: 20181010
  Serious: Yes (Other)
  Sender: FDA-Public Use
  Company Number: US-ELI_LILLY_AND_COMPANY-US201807001986

PATIENT
  Age: 39 Year
  Sex: Female

DRUGS (1)
  1. CYMBALTA [Suspect]
     Active Substance: DULOXETINE HYDROCHLORIDE
     Indication: PRODUCT USED FOR UNKNOWN INDICATION
     Dosage: UNK UNK, UNKNOWN
     Route: 065
     Dates: end: 2017

REACTIONS (15)
  - Asthenia [Unknown]
  - Cerebral disorder [Unknown]
  - Irritability [Unknown]
  - Eating disorder [Unknown]
  - Confusional state [Unknown]
  - Paraesthesia [Unknown]
  - Self esteem decreased [Unknown]
  - Mood swings [Unknown]
  - Withdrawal syndrome [Unknown]
  - Mental status changes [Unknown]
  - Weight decreased [Unknown]
  - Depression [Unknown]
  - Tachyphrenia [Unknown]
  - Loss of libido [Unknown]
  - Blood pressure increased [Unknown]

NARRATIVE: CASE EVENT DATE: 2017
